FAERS Safety Report 17282299 (Version 1)
Quarter: 2020Q1

REPORT INFORMATION
  Report Type: Spontaneous
  Country: US (occurrence: US)
  Receive Date: 20200116
  Receipt Date: 20200116
  Transmission Date: 20200409
  Serious: No
  Sender: FDA-Public Use
  Company Number: None

PATIENT
  Age: 55 Year
  Sex: Female

DRUGS (18)
  1. ISONIAZID. [Concomitant]
     Active Substance: ISONIAZID
  2. ORENCIA [Suspect]
     Active Substance: ABATACEPT
     Dosage: ?          OTHER FREQUENCY:WEEKLY;?
     Route: 058
     Dates: start: 20150702
  3. FLONASE [Concomitant]
     Active Substance: FLUTICASONE PROPIONATE
  4. PROAIR HFA [Concomitant]
     Active Substance: ALBUTEROL SULFATE
  5. PSEUDOVENT [Concomitant]
  6. ESTRADIOL. [Concomitant]
     Active Substance: ESTRADIOL
  7. FLUTICASONE. [Concomitant]
     Active Substance: FLUTICASONE
  8. FOLIC ACID. [Concomitant]
     Active Substance: FOLIC ACID
  9. POLYMYXIN [Concomitant]
     Active Substance: POLYMYXIN
  10. NAPROXEN. [Concomitant]
     Active Substance: NAPROXEN
  11. BENADRYL [Concomitant]
     Active Substance: DIPHENHYDRAMINE HYDROCHLORIDE
  12. VITAMIN B-6 [Concomitant]
     Active Substance: PYRIDOXINE
  13. OMEPRAZOLE. [Concomitant]
     Active Substance: OMEPRAZOLE
  14. CIPROFLOXACN [Concomitant]
     Active Substance: CIPROFLOXACIN
  15. METHOTREXATE. [Concomitant]
     Active Substance: METHOTREXATE
  16. TOPAMAX [Concomitant]
     Active Substance: TOPIRAMATE
  17. ALLERGY [Concomitant]
     Active Substance: UNSPECIFIED INGREDIENT
  18. NAPROSYN [Concomitant]
     Active Substance: NAPROXEN

REACTIONS (1)
  - Infection [None]

NARRATIVE: CASE EVENT DATE: 20200116
